FAERS Safety Report 6584278-4 (Version None)
Quarter: 2010Q1

REPORT INFORMATION
  Report Type: 
  Country: None (occurrence: None)
  Receive Date: 20100213
  Receipt Date: 20100213
  Transmission Date: 20100710
  Serious: No
  Sender: FDA-Public Use
  Company Number: None

PATIENT
  Sex: Male

DRUGS (7)
  1. CELEBREX [Suspect]
     Indication: INFLAMMATION
     Dosage: 200 MG DAILY PO
     Route: 048
     Dates: start: 20100207, end: 20100209
  2. COUMADIN [Concomitant]
  3. LIPITOR [Concomitant]
  4. CRESTOR [Concomitant]
  5. METANX [Concomitant]
  6. MULTI-VITAMIN [Concomitant]
  7. ZINC [Concomitant]

REACTIONS (4)
  - ERYTHEMA [None]
  - PRURITUS [None]
  - RASH [None]
  - SCAB [None]
